FAERS Safety Report 11217866 (Version 2)
Quarter: 2015Q3

REPORT INFORMATION
  Report Type: Spontaneous
  Country: IT (occurrence: IT)
  Receive Date: 20150625
  Receipt Date: 20150710
  Transmission Date: 20151125
  Serious: Yes (Other)
  Sender: FDA-Public Use
  Company Number: CHPA2015IT007538

PATIENT
  Age: 25 Year
  Sex: Male

DRUGS (5)
  1. ZIMOX [Suspect]
     Active Substance: AMOXICILLIN
     Indication: TOOTHACHE
     Dosage: UNK
     Route: 065
     Dates: start: 20141207, end: 20141207
  2. DICLOFENAC [Suspect]
     Active Substance: DICLOFENAC
     Indication: TOOTHACHE
     Dosage: 300 MG, UNK
     Route: 065
     Dates: start: 20141207, end: 20141207
  3. OKI [Suspect]
     Active Substance: KETOPROFEN LYSINE
     Indication: TOOTHACHE
     Dosage: 400 MG, UNK
     Route: 065
     Dates: start: 20141207, end: 20141207
  4. TACHIPIRINA [Suspect]
     Active Substance: ACETAMINOPHEN
     Indication: TOOTHACHE
     Dosage: 1500 MG, UNK
     Route: 065
     Dates: start: 20141207, end: 20141207
  5. INDOMETHACIN. [Suspect]
     Active Substance: INDOMETHACIN
     Indication: TOOTHACHE
     Dosage: 50 MG, UNK
     Route: 065
     Dates: start: 20141207, end: 20141207

REACTIONS (3)
  - Nausea [Recovering/Resolving]
  - Abdominal pain upper [Recovering/Resolving]
  - Overdose [Recovering/Resolving]

NARRATIVE: CASE EVENT DATE: 20141207
